FAERS Safety Report 21056511 (Version 5)
Quarter: 2022Q3

REPORT INFORMATION
  Report Type: Report from Study
  Country: AU (occurrence: AU)
  Receive Date: 20220708
  Receipt Date: 20220824
  Transmission Date: 20221027
  Serious: Yes (Hospitalization, Other)
  Sender: FDA-Public Use
  Company Number: AU-NOVARTISPH-NVSC2021AU283902

PATIENT
  Sex: Female

DRUGS (2)
  1. KESIMPTA [Suspect]
     Active Substance: OFATUMUMAB
     Indication: Relapsing-remitting multiple sclerosis
     Dosage: 20 MG, QMO
     Route: 058
     Dates: start: 20211008
  2. METHYLPREDNISOLONE [Concomitant]
     Active Substance: METHYLPREDNISOLONE
     Indication: Product used for unknown indication
     Dosage: UNK (3/7 COURSE)
     Route: 042

REACTIONS (18)
  - COVID-19 [Unknown]
  - Fatigue [Unknown]
  - Depressed mood [Unknown]
  - Asthenia [Unknown]
  - Hemiparesis [Unknown]
  - Multiple sclerosis [Unknown]
  - Malaise [Unknown]
  - Knee deformity [Unknown]
  - Arthralgia [Unknown]
  - Dyspnoea [Unknown]
  - Pain in extremity [Unknown]
  - Muscular weakness [Unknown]
  - Abdominal discomfort [Unknown]
  - Cardiac disorder [Unknown]
  - Oropharyngeal discomfort [Unknown]
  - Injection site bruising [Unknown]
  - Inappropriate schedule of product administration [Unknown]
  - Product dose omission issue [Unknown]
